FAERS Safety Report 7118907-3 (Version None)
Quarter: 2010Q4

REPORT INFORMATION
  Report Type: 
  Country: None (occurrence: None)
  Receive Date: 20101123
  Receipt Date: 20101117
  Transmission Date: 20110411
  Serious: Yes (Hospitalization)
  Sender: FDA-Public Use
  Company Number: Z0003880C

PATIENT
  Age: 64 Year
  Sex: Female
  Weight: 64.7 kg

DRUGS (4)
  1. OFATUMUMAB [Suspect]
     Indication: LYMPHOMA
     Route: 042
     Dates: start: 20100407
  2. DEXAMETHASONE [Suspect]
     Indication: LYMPHOMA
     Route: 042
     Dates: start: 20100407
  3. CISPLATIN [Suspect]
     Indication: LYMPHOMA
     Dosage: 100MGM2 CONTINUOUS
     Route: 042
     Dates: start: 20100408
  4. CYTARABINE [Suspect]
     Indication: LYMPHOMA
     Route: 042
     Dates: start: 20100409

REACTIONS (3)
  - BLOOD CREATININE INCREASED [None]
  - NAUSEA [None]
  - VOMITING [None]
